FAERS Safety Report 17200945 (Version 1)
Quarter: 2019Q4

REPORT INFORMATION
  Report Type: Spontaneous
  Country: US (occurrence: US)
  Receive Date: 20191202
  Receipt Date: 20191202
  Transmission Date: 20200122
  Serious: Yes (Life-Threatening, Hospitalization, Disabling)
  Sender: FDA-Public Use
  Company Number: None

PATIENT
  Age: 72 Year
  Sex: Male
  Weight: 84.82 kg

DRUGS (20)
  1. ZETIA [Concomitant]
     Active Substance: EZETIMIBE
  2. CRESTOR [Concomitant]
     Active Substance: ROSUVASTATIN CALCIUM
  3. RESVERATROL [Concomitant]
     Active Substance: DIETARY SUPPLEMENT\RESVERATROL
  4. PROTONEX [Concomitant]
  5. NEFEDIPINE [Concomitant]
  6. MULTI VITAMIN [Concomitant]
     Active Substance: VITAMINS
  7. BLACK CUMIN SEED OIL [Concomitant]
  8. ENZYMES [Concomitant]
  9. TOPROL XL [Concomitant]
     Active Substance: METOPROLOL SUCCINATE
  10. HYDRAZALINE [Concomitant]
  11. KRILL [Concomitant]
  12. OMEGA-3 FISH OIL BLEND [Concomitant]
  13. PLAVIX [Concomitant]
     Active Substance: CLOPIDOGREL BISULFATE
  14. COENZYME Q10 [Concomitant]
     Active Substance: UBIDECARENONE
  15. BREATHE-X [Concomitant]
  16. RANITIDINE 150MG CAPSULES [Suspect]
     Active Substance: RANITIDINE
     Indication: GASTROOESOPHAGEAL REFLUX DISEASE
     Dosage: ?          QUANTITY:1 DF DOSAGE FORM;?
     Route: 048
     Dates: end: 20190407
  17. POMEGRANATE [Suspect]
     Active Substance: POMEGRANATE
  18. AMPK [Concomitant]
  19. SAMBUCUS [Concomitant]
  20. PROBIOTICS [Concomitant]
     Active Substance: PROBIOTICS NOS

REACTIONS (5)
  - Skin cancer [None]
  - Pancreatitis [None]
  - Prostate cancer [None]
  - Pancreatic carcinoma [None]
  - Colon cancer [None]
